FAERS Safety Report 10065213 (Version 3)
Quarter: 2015Q2

REPORT INFORMATION
  Report Type: Spontaneous
  Country: US (occurrence: US)
  Receive Date: 20140408
  Receipt Date: 20150505
  Transmission Date: 20150821
  Serious: Yes (Death, Life-Threatening, Hospitalization, Other)
  Sender: FDA-Public Use
  Company Number: US-009507513-1404USA004129

PATIENT
  Sex: Male
  Weight: 63.49 kg

DRUGS (2)
  1. BYETTA [Suspect]
     Active Substance: EXENATIDE
     Dosage: 10 MICROGRAM, BID
     Route: 048
     Dates: start: 20111214, end: 20120224
  2. JANUVIA [Suspect]
     Active Substance: SITAGLIPTIN PHOSPHATE
     Indication: TYPE 2 DIABETES MELLITUS
     Dosage: 100 MG, QD
     Route: 048
     Dates: start: 20100706, end: 20120119

REACTIONS (20)
  - Mental status changes [Recovered/Resolved]
  - Dyslipidaemia [Unknown]
  - Cardiac failure congestive [Unknown]
  - Bladder cancer [Unknown]
  - Fall [Recovered/Resolved]
  - Bile duct stent insertion [Unknown]
  - Peripheral vascular disorder [Unknown]
  - Troponin increased [Unknown]
  - Pancreatic carcinoma metastatic [Fatal]
  - Hypertension [Unknown]
  - Hypothyroidism [Unknown]
  - Ischaemic cardiomyopathy [Unknown]
  - Klebsiella bacteraemia [Unknown]
  - Pancreatic cyst [Unknown]
  - Pollakiuria [Unknown]
  - Cerebral atrophy [Unknown]
  - Wound [Unknown]
  - Hyponatraemia [Unknown]
  - Metastases to liver [Unknown]
  - Hepatic enzyme abnormal [Unknown]

NARRATIVE: CASE EVENT DATE: 201203
